FAERS Safety Report 4835357-0 (Version None)
Quarter: 2005Q4

REPORT INFORMATION
  Report Type: 
  Country: None (occurrence: None)
  Receive Date: 20051114
  Receipt Date: 20051028
  Transmission Date: 20060501
  Serious: Yes (Other)
  Sender: FDA-Public Use
  Company Number: AND_0234_2005

PATIENT
  Age: 47 Year
  Sex: Female

DRUGS (2)
  1. ALTOPREV [Suspect]
     Dosage: DF
     Dates: start: 20050301, end: 20050301
  2. ALTOPREV [Suspect]
     Dosage: DF
     Dates: start: 20050901, end: 20051028

REACTIONS (4)
  - ANGIOPATHY [None]
  - CHEST PAIN [None]
  - DYSPNOEA [None]
  - FACE OEDEMA [None]
